FAERS Safety Report 5452927-X (Version None)
Quarter: 2007Q3

REPORT INFORMATION
  Report Type: 
  Country: None (occurrence: None)
  Receive Date: 20070914
  Receipt Date: 20070905
  Transmission Date: 20080115
  Serious: Yes (Death)
  Sender: FDA-Public Use
  Company Number: US-TYCO HEALTHCARE/MALLINCKRODT-T200701046

PATIENT

DRUGS (1)
  1. METHADOSE [Suspect]

REACTIONS (2)
  - BRAIN OEDEMA [None]
  - DYSPNOEA [None]
